FAERS Safety Report 7640700-3 (Version None)
Quarter: 2011Q3

REPORT INFORMATION
  Report Type: 
  Country: None (occurrence: None)
  Receive Date: 20110728
  Receipt Date: 20110721
  Transmission Date: 20111222
  Serious: Yes (Other)
  Sender: FDA-Public Use
  Company Number: US-BAYER-2010-006729

PATIENT
  Age: 21 Year
  Sex: Female
  Weight: 83.9 kg

DRUGS (11)
  1. IBUPROFEN [Concomitant]
     Dosage: UNK UNK, PRN
  2. AMPHETAMINE AND DEXTROAMPHETAMINE SALTS [Concomitant]
  3. YAZ [Suspect]
     Indication: PREMENSTRUAL SYNDROME
  4. YAZ [Suspect]
  5. ADDERALL 10 [Concomitant]
     Indication: ATTENTION DEFICIT/HYPERACTIVITY DISORDER
     Dosage: UNK
     Dates: start: 20040101
  6. YAZ [Suspect]
     Indication: ORAL CONTRACEPTION
     Dosage: UNK
     Dates: start: 20070801, end: 20100130
  7. ZYRTEC [Concomitant]
     Indication: MULTIPLE ALLERGIES
     Dosage: UNK
     Dates: start: 20060101
  8. PRISTIQ [Concomitant]
  9. NASONEX [Concomitant]
     Indication: MULTIPLE ALLERGIES
     Dosage: UNK
     Dates: start: 20060101
  10. ZOLPIDEM [Concomitant]
  11. ALPRAZOLAM [Concomitant]

REACTIONS (8)
  - ANXIETY [None]
  - RASH [None]
  - GALLBLADDER DISORDER [None]
  - DYSPEPSIA [None]
  - SKIN EXFOLIATION [None]
  - DEPRESSION [None]
  - GALLBLADDER PAIN [None]
  - FATIGUE [None]
